FAERS Safety Report 6355589-2 (Version None)
Quarter: 2009Q3

REPORT INFORMATION
  Report Type: 
  Country: None (occurrence: None)
  Receive Date: 20090910
  Receipt Date: 20090825
  Transmission Date: 20100115
  Serious: Yes (Hospitalization)
  Sender: FDA-Public Use
  Company Number: 2009AL000155

PATIENT
  Age: 65 Year
  Sex: Male

DRUGS (30)
  1. DIGOXIN [Suspect]
     Dosage: 0.25MG, DAILY, PO
     Route: 048
  2. LANOXIN [Suspect]
     Dosage: 0.125 MG, DAILY, PO
     Route: 048
  3. ASPIRIN [Concomitant]
  4. TERAZOSIN HCL [Concomitant]
  5. MECLIZINE [Concomitant]
  6. VALSARTAN [Concomitant]
  7. FUROSEMIDE [Concomitant]
  8. BUPROPION HCL [Concomitant]
  9. OMEPRAZOLE [Concomitant]
  10. POTASSIUM CHLORIDE [Concomitant]
  11. ADVIL [Concomitant]
  12. LEVOTHYROXINE SODIUM [Concomitant]
  13. LIPITOR [Concomitant]
  14. VASOTEC [Concomitant]
  15. SYNTHROID [Concomitant]
  16. PRILOSEC [Concomitant]
  17. IMDUR [Concomitant]
  18. LISINOPRIL [Concomitant]
  19. ALDACTONE [Concomitant]
  20. COLACE [Concomitant]
  21. COREG [Concomitant]
  22. NITROGLYCERIN [Concomitant]
  23. COUMADIN [Concomitant]
  24. CENTRUM SILVER [Concomitant]
  25. PROTONIX [Concomitant]
  26. TOPROL-XL [Concomitant]
  27. SPIRONOLACTONE [Concomitant]
  28. ATACAND [Concomitant]
  29. WELLBUTRIN [Concomitant]
  30. AVELOX [Concomitant]

REACTIONS (20)
  - ATRIAL FIBRILLATION [None]
  - BACK PAIN [None]
  - CARDIAC DISORDER [None]
  - CARDIAC FAILURE CONGESTIVE [None]
  - CARDIOACTIVE DRUG LEVEL INCREASED [None]
  - CONSTIPATION [None]
  - DYSPEPSIA [None]
  - FALL [None]
  - HYPERTENSION [None]
  - HYPOAESTHESIA [None]
  - HYPOTENSION [None]
  - INJURY [None]
  - ISCHAEMIC CARDIOMYOPATHY [None]
  - MYOCARDIAL INFARCTION [None]
  - PNEUMONIA [None]
  - RENAL FAILURE ACUTE [None]
  - SPINAL COMPRESSION FRACTURE [None]
  - THERAPEUTIC AGENT TOXICITY [None]
  - UNEVALUABLE EVENT [None]
  - URINARY INCONTINENCE [None]
